FAERS Safety Report 8003476-6 (Version None)
Quarter: 2011Q4

REPORT INFORMATION
  Report Type: 
  Country: None (occurrence: None)
  Receive Date: 20111222
  Receipt Date: 20111220
  Transmission Date: 20120403
  Serious: No
  Sender: FDA-Public Use
  Company Number: US-PFIZER INC-2011309449

PATIENT
  Sex: Female

DRUGS (2)
  1. NEURONTIN [Suspect]
     Dosage: 100 MG, 3X/DAY
     Route: 048
  2. NEURONTIN [Suspect]
     Dosage: UNK
     Route: 048

REACTIONS (1)
  - TINNITUS [None]
